FAERS Safety Report 9642149 (Version 7)
Quarter: 2015Q2

REPORT INFORMATION
  Report Type: Report from Study
  Country: JP (occurrence: JP)
  Receive Date: 20131023
  Receipt Date: 20150630
  Transmission Date: 20150821
  Serious: Yes (Other)
  Sender: FDA-Public Use
  Company Number: PHHY2012JP122818

PATIENT
  Age: 22 Year
  Sex: Male
  Weight: 44 kg

DRUGS (18)
  1. ACZ885 [Suspect]
     Active Substance: CANAKINUMAB
     Dosage: 300 MG, UNK
     Route: 058
     Dates: start: 20120925, end: 20120925
  2. ACZ885 [Suspect]
     Active Substance: CANAKINUMAB
     Dosage: 300 MG, UNK
     Route: 058
     Dates: start: 20130627, end: 20130627
  3. LOCOID [Concomitant]
     Active Substance: HYDROCORTISONE BUTYRATE
     Indication: PRODUCT USED FOR UNKNOWN INDICATION
     Dosage: UNK
     Route: 065
     Dates: start: 20120206
  4. ACZ885 [Suspect]
     Active Substance: CANAKINUMAB
     Dosage: 300 MG, UNK
     Route: 058
     Dates: start: 20120405, end: 20120405
  5. ACZ885 [Suspect]
     Active Substance: CANAKINUMAB
     Dosage: 300 MG, UNK
     Route: 058
     Dates: start: 20130502, end: 20130502
  6. ACZ885 [Suspect]
     Active Substance: CANAKINUMAB
     Dosage: 300 MG, UNK
     Route: 058
     Dates: start: 20131017, end: 20131017
  7. ACZ885 [Suspect]
     Active Substance: CANAKINUMAB
     Dosage: 300 MG, UNK
     Route: 058
     Dates: start: 20140206
  8. GLAKAY [Concomitant]
     Active Substance: MENATETRENONE
     Indication: PRODUCT USED FOR UNKNOWN INDICATION
     Dosage: 30 MG, UNK
     Route: 048
  9. ACZ885 [Suspect]
     Active Substance: CANAKINUMAB
     Indication: CHRONIC INFANTILE NEUROLOGICAL CUTANEOUS AND ARTICULAR SYNDROME
     Dosage: 150 MG, UNK
     Route: 058
     Dates: start: 20120202, end: 20120202
  10. ACZ885 [Suspect]
     Active Substance: CANAKINUMAB
     Dosage: 300 MG, UNK
     Route: 058
     Dates: start: 20120802, end: 20120802
  11. ACZ885 [Suspect]
     Active Substance: CANAKINUMAB
     Dosage: 300 MG, UNK
     Route: 058
     Dates: start: 20120209, end: 20120209
  12. ACZ885 [Suspect]
     Active Substance: CANAKINUMAB
     Dosage: 300 MG, UNK
     Route: 058
     Dates: start: 20130307, end: 20130307
  13. ACZ885 [Suspect]
     Active Substance: CANAKINUMAB
     Dosage: 300 MG, UNK
     Route: 058
     Dates: start: 20130822, end: 20130822
  14. ACZ885 [Suspect]
     Active Substance: CANAKINUMAB
     Dosage: 300 MG, UNK
     Route: 058
     Dates: start: 20131210, end: 20131210
  15. ACZ885 [Suspect]
     Active Substance: CANAKINUMAB
     Dosage: 300 MG, UNK
     Route: 058
     Dates: start: 20121120, end: 20121120
  16. ACZ885 [Suspect]
     Active Substance: CANAKINUMAB
     Dosage: 300 MG, UNK
     Route: 058
     Dates: start: 20120605, end: 20120605
  17. ACZ885 [Suspect]
     Active Substance: CANAKINUMAB
     Dosage: 300 MG, UNK
     Route: 058
     Dates: start: 20130110, end: 20130110
  18. ONEALFA [Concomitant]
     Active Substance: ALFACALCIDOL
     Indication: PRODUCT USED FOR UNKNOWN INDICATION
     Dosage: 0.25 MG, UNK
     Route: 048

REACTIONS (26)
  - Campylobacter gastroenteritis [Recovered/Resolved]
  - Dyspepsia [Recovered/Resolved]
  - Lymphocyte count increased [Unknown]
  - Lymphocyte count decreased [Unknown]
  - Upper respiratory tract inflammation [Recovered/Resolved]
  - Impetigo [Recovering/Resolving]
  - Pemphigoid [Unknown]
  - Impetigo [Recovering/Resolving]
  - Impetigo [Recovering/Resolving]
  - Neutrophil count increased [Unknown]
  - Back pain [Recovered/Resolved]
  - Skin infection [Recovered/Resolved]
  - Eosinophil count increased [Unknown]
  - White blood cell count increased [Unknown]
  - Dyspnoea [Recovered/Resolved]
  - Subcutaneous abscess [Recovered/Resolved]
  - Subcutaneous abscess [Recovered/Resolved]
  - Impetigo [Recovered/Resolved]
  - Purulent discharge [Recovered/Resolved]
  - Monocyte count increased [Unknown]
  - Serum amyloid A protein increased [Unknown]
  - Skin erosion [Unknown]
  - Neutrophil count decreased [Unknown]
  - Upper respiratory tract infection [Recovering/Resolving]
  - Nasopharyngitis [Unknown]
  - Skin induration [Recovered/Resolved]

NARRATIVE: CASE EVENT DATE: 20120209
